FAERS Safety Report 7938897-0 (Version None)
Quarter: 2011Q4

REPORT INFORMATION
  Report Type: 
  Country: None (occurrence: None)
  Receive Date: 20111124
  Receipt Date: 20111118
  Transmission Date: 20120403
  Serious: Yes (Other)
  Sender: FDA-Public Use
  Company Number: CHPA2011US016394

PATIENT
  Age: 91 Year
  Sex: Female

DRUGS (3)
  1. DIPHENHYDRAMINE HCL [Concomitant]
     Dosage: UNK DF, UNK
  2. TRANSDERM SCOP [Suspect]
     Indication: NAUSEA
     Dosage: 1 DF, Q72H
     Route: 062
  3. FUROSEMIDE [Concomitant]
     Dosage: UNK DF, UNK

REACTIONS (5)
  - VOMITING [None]
  - OFF LABEL USE [None]
  - DYSPNOEA [None]
  - DISEASE PROGRESSION [None]
  - DIZZINESS [None]
